FAERS Safety Report 8385992-0 (Version None)
Quarter: 2012Q2

REPORT INFORMATION
  Report Type: 
  Country: None (occurrence: None)
  Receive Date: 20120523
  Receipt Date: 20120515
  Transmission Date: 20120825
  Serious: Yes (Hospitalization)
  Sender: FDA-Public Use
  Company Number: 2012SP018305

PATIENT
  Age: 55 Year
  Sex: Female
  Weight: 97 kg

DRUGS (8)
  1. REBETOL [Suspect]
     Indication: HEPATITIS C
     Dosage: 1000 MG;QD;PO, 800 MG;QD;PO
     Route: 048
     Dates: start: 20120409
  2. REBETOL [Suspect]
     Indication: HEPATITIS C
     Dosage: 1000 MG;QD;PO, 800 MG;QD;PO
     Route: 048
     Dates: start: 20120131, end: 20120408
  3. TORSEMIDE [Suspect]
     Indication: FACE OEDEMA
     Dosage: 4 MG;QD;PO
     Route: 048
     Dates: start: 20120326, end: 20120405
  4. TELAVIC (ANTIVIRAL NOS) [Suspect]
     Indication: HEPATITIS C
     Dosage: 2250 MG;QD;PO
     Route: 048
     Dates: start: 20120131, end: 20120327
  5. CLARITIN /00413701/ [Concomitant]
  6. MICARDIS [Concomitant]
  7. PEGINTERFERON ALFA-2B [Suspect]
     Indication: HEPATITIS C
     Dosage: 1.5 MG/KG;QW;IV, 1.2 MG/KG;QW;IV
     Route: 042
     Dates: start: 20120409
  8. PEGINTERFERON ALFA-2B [Suspect]
     Indication: HEPATITIS C
     Dosage: 1.5 MG/KG;QW;IV, 1.2 MG/KG;QW;IV
     Route: 042
     Dates: start: 20120131, end: 20120402

REACTIONS (10)
  - WHITE BLOOD CELL COUNT DECREASED [None]
  - VOMITING [None]
  - FACE OEDEMA [None]
  - NAUSEA [None]
  - PLATELET COUNT DECREASED [None]
  - PRURITUS [None]
  - HAEMOGLOBIN DECREASED [None]
  - HYPOKALAEMIA [None]
  - DIZZINESS [None]
  - HYPOTENSION [None]
